FAERS Safety Report 7513882-1 (Version None)
Quarter: 2011Q2

REPORT INFORMATION
  Report Type: 
  Country: None (occurrence: None)
  Receive Date: 20110531
  Receipt Date: 20110517
  Transmission Date: 20111010
  Serious: Yes (Other)
  Sender: FDA-Public Use
  Company Number: PHHY2011US39883

PATIENT
  Sex: Female

DRUGS (1)
  1. STALEVO 100 [Suspect]
     Dosage: 100 MG, 6QD

REACTIONS (3)
  - VOCAL CORD PARALYSIS [None]
  - WRONG TECHNIQUE IN DRUG USAGE PROCESS [None]
  - DYSPHAGIA [None]
